FAERS Safety Report 24198817 (Version 2)
Quarter: 2024Q4

REPORT INFORMATION
  Report Type: Spontaneous
  Country: US (occurrence: US)
  Receive Date: 20240812
  Receipt Date: 20241014
  Transmission Date: 20250114
  Serious: Yes (Disabling)
  Sender: NOVARTIS
  Company Number: US-002147023-NVSC2024US162460

PATIENT
  Sex: Male

DRUGS (1)
  1. COSENTYX [Suspect]
     Active Substance: SECUKINUMAB
     Indication: Psoriasis
     Dosage: UNK
     Route: 058

REACTIONS (2)
  - Cytomegalovirus infection [Unknown]
  - Blindness [Unknown]
